FAERS Safety Report 5534377-0 (Version None)
Quarter: 2007Q4

REPORT INFORMATION
  Report Type: 
  Country: None (occurrence: None)
  Receive Date: 20071130
  Receipt Date: 20071119
  Transmission Date: 20080405
  Serious: Yes (Life-Threatening)
  Sender: FDA-Public Use
  Company Number: 2006-01641

PATIENT
  Age: 45 Year

DRUGS (5)
  1. VELCADE [Suspect]
     Indication: MULTIPLE MYELOMA
  2. MELPHALAN (MELPHALAN) VIAL [Suspect]
     Indication: MULTIPLE MYELOMA
  3. ACYCLOVIR [Concomitant]
  4. MORFIN (MORPHINE) [Concomitant]
  5. CLINOMEL (GLUCOSE, AMINO ACIDS NOS, ELECTROLYTES NOS, LIPIDS NOS, CALC [Concomitant]

REACTIONS (2)
  - ACUTE RESPIRATORY DISTRESS SYNDROME [None]
  - NEUTROPENIA [None]
